FAERS Safety Report 9220804 (Version 3)
Quarter: 2013Q4

REPORT INFORMATION
  Report Type: Report from Study
  Country: CA (occurrence: CA)
  Receive Date: 20130409
  Receipt Date: 20131002
  Transmission Date: 20140711
  Serious: Yes (Hospitalization)
  Sender: FDA-Public Use
  Company Number: CA-ELI_LILLY_AND_COMPANY-CA201304000614

PATIENT
  Age: 83 Year
  Sex: Female
  Weight: 56.3 kg

DRUGS (11)
  1. TERIPARATIDE [Suspect]
     Indication: OSTEOPOROSIS
     Dosage: 20 UG, QD
     Route: 058
     Dates: start: 20110620, end: 20130308
  2. TERIPARATIDE [Suspect]
     Dosage: 20 UG, QD
     Dates: start: 20130312
  3. ENALAPRIL [Concomitant]
  4. SIMVASTATIN [Concomitant]
  5. LASIX [Concomitant]
  6. CALCIUM [Concomitant]
  7. VITAMIN D [Concomitant]
  8. ASA [Concomitant]
  9. TYLENOL ARTHRITIS [Concomitant]
  10. OMEGA COMBINATION [Concomitant]
  11. GLUCOSAMINE + CHONDROITIN [Concomitant]

REACTIONS (1)
  - Osteoarthritis [Recovered/Resolved]
